FAERS Safety Report 14547545 (Version 1)
Quarter: 2018Q1

REPORT INFORMATION
  Report Type: Spontaneous
  Country: IT (occurrence: IT)
  Receive Date: 20180219
  Receipt Date: 20180219
  Transmission Date: 20180509
  Serious: Yes (Death, Other)
  Sender: FDA-Public Use
  Company Number: PHHY2018IT025824

PATIENT
  Sex: Male

DRUGS (2)
  1. NIVOLUMAB [Suspect]
     Active Substance: NIVOLUMAB
     Indication: PRODUCT USED FOR UNKNOWN INDICATION
     Dosage: 3 MG/KG, UNK (200MG TOTAL)
     Route: 065
     Dates: start: 20171031
  2. DABRAFENIB [Suspect]
     Active Substance: DABRAFENIB
     Indication: PRODUCT USED FOR UNKNOWN INDICATION
     Dosage: UNK
     Route: 065
     Dates: start: 201605, end: 201709

REACTIONS (7)
  - Death [Fatal]
  - General physical health deterioration [Unknown]
  - Leukocytosis [Unknown]
  - Metastases to skin [Unknown]
  - Myocarditis [Unknown]
  - Therapeutic response unexpected [Unknown]
  - Dyspnoea [Unknown]

NARRATIVE: CASE EVENT DATE: 201709
